FAERS Safety Report 6920295-X (Version None)
Quarter: 2010Q3

REPORT INFORMATION
  Report Type: 
  Country: None (occurrence: None)
  Receive Date: 20100811
  Receipt Date: 20100802
  Transmission Date: 20110219
  Serious: Yes (Other)
  Sender: FDA-Public Use
  Company Number: CH-AMGEN-QUU423154

PATIENT
  Age: 58 Year
  Sex: Female

DRUGS (12)
  1. ENBREL [Suspect]
     Indication: RHEUMATOID ARTHRITIS
     Dates: start: 20100331, end: 20100401
  2. ENBREL [Suspect]
     Dates: start: 20100501, end: 20100615
  3. METHOTREXATE [Suspect]
     Indication: RHEUMATOID ARTHRITIS
     Dates: start: 20081112, end: 20090601
  4. METHOTREXATE [Suspect]
     Dates: start: 20090601
  5. METHOTREXATE [Suspect]
     Dates: start: 20090101, end: 20100101
  6. METHOTREXATE [Suspect]
     Dates: start: 20100101, end: 20100608
  7. HUMIRA [Concomitant]
     Indication: RHEUMATOID ARTHRITIS
     Dates: start: 20100204, end: 20100318
  8. CORTICOSTEROID NOS [Concomitant]
     Dosage: DOSE AND FREQUENCY UNKNOWN
     Dates: start: 20091101, end: 20091101
  9. VALVERDE [Concomitant]
     Dosage: SELF MEDICATION,DOSE UNKNOWN
     Dates: start: 20090701, end: 20090801
  10. LORAZEPAM [Concomitant]
     Dosage: FROM THE RESERVE
  11. TRIMIPRAMINE [Concomitant]
     Dosage: PRESCRIBED DOSE 25 MG DAILY, TAKEN SPORADICALLY AND STOPPED QUITE SOON
     Dates: start: 20090901
  12. FOLIC ACID [Concomitant]
     Dosage: DOSE AND FREQUENCY UNKNOWN
     Dates: start: 20090101

REACTIONS (11)
  - ALANINE AMINOTRANSFERASE INCREASED [None]
  - ALOPECIA [None]
  - ASPARTATE AMINOTRANSFERASE INCREASED [None]
  - ASTHENIA [None]
  - BLOOD ALKALINE PHOSPHATASE INCREASED [None]
  - CONDITION AGGRAVATED [None]
  - DRUG ERUPTION [None]
  - PARAPSORIASIS [None]
  - PITYRIASIS LICHENOIDES ET VARIOLIFORMIS ACUTA [None]
  - SKIN DISORDER [None]
  - SYSTEMIC LUPUS ERYTHEMATOSUS [None]
